FAERS Safety Report 11206621 (Version 1)
Quarter: 2015Q2

REPORT INFORMATION
  Report Type: Spontaneous
  Country: US (occurrence: None)
  Receive Date: 20150618
  Receipt Date: 20150618
  Transmission Date: 20150821
  Serious: No
  Sender: FDA-Public Use
  Company Number: None

PATIENT
  Age: 57 Year
  Sex: Female
  Weight: 76.2 kg

DRUGS (14)
  1. L-CARNITINE [Concomitant]
     Active Substance: CARNITINE
  2. ADVIL [Concomitant]
     Active Substance: IBUPROFEN
  3. TECFIDERA [Suspect]
     Active Substance: DIMETHYL FUMARATE
     Indication: MULTIPLE SCLEROSIS
     Dosage: 1 PILL
     Route: 048
     Dates: start: 20150522, end: 20150616
  4. VITAMIN D [Concomitant]
     Active Substance: CHOLECALCIFEROL
  5. VITAMIN B12 [Concomitant]
     Active Substance: CYANOCOBALAMIN
  6. PROGESTERONE. [Concomitant]
     Active Substance: PROGESTERONE
  7. TESTOSTERONE. [Concomitant]
     Active Substance: TESTOSTERONE
  8. CALCIUM [Concomitant]
     Active Substance: CALCIUM
  9. LDN ANTIBIOTICS [Concomitant]
  10. VITAMIN E [Concomitant]
     Active Substance: .ALPHA.-TOCOPHEROL
  11. ESTROGEN [Concomitant]
     Active Substance: ESTRONE\SUS SCROFA OVARY
  12. 5HTP [Concomitant]
  13. OMEGA3 [Concomitant]
  14. ASPIRIN. [Concomitant]
     Active Substance: ASPIRIN

REACTIONS (2)
  - Headache [None]
  - Tinnitus [None]

NARRATIVE: CASE EVENT DATE: 20150601
